FAERS Safety Report 5106130-3 (Version None)
Quarter: 2006Q3

REPORT INFORMATION
  Report Type: 
  Country: None (occurrence: None)
  Receive Date: 20060912
  Receipt Date: 20060831
  Transmission Date: 20061208
  Serious: Yes (Hospitalization)
  Sender: FDA-Public Use
  Company Number: BR-2006-025822

PATIENT
  Age: 58 Year
  Sex: Female

DRUGS (1)
  1. BETAFERON(INTERFERON BETA - 1B) INJECTION, 250UG [Suspect]
     Indication: MULTIPLE SCLEROSIS
     Dosage: MIU, EVERY 2D, SUBCUTANEOUS
     Route: 058
     Dates: start: 20060401

REACTIONS (1)
  - HOSPITALISATION [None]
